FAERS Safety Report 8959517 (Version 4)
Quarter: 2013Q1

REPORT INFORMATION
  Report Type: Spontaneous
  Country: AU (occurrence: AU)
  Receive Date: 20121211
  Receipt Date: 20130221
  Transmission Date: 20140127
  Serious: Yes (Hospitalization)
  Sender: FDA-Public Use
  Company Number: AU-009507513-1210AUS000047

PATIENT
  Age: 50 Year
  Sex: Female
  Weight: 79 kg

DRUGS (10)
  1. VICTRELIS 200 MG [Suspect]
     Indication: HEPATITIS C
     Dosage: 2.4 G, QD
     Route: 048
     Dates: start: 20120726
  2. VICTRELIS 200 MG [Suspect]
     Indication: HEPATIC CIRRHOSIS
  3. RIBAVIRIN [Suspect]
     Indication: HEPATITIS C
     Dosage: 100 MG, QD
     Route: 048
     Dates: start: 20120727
  4. RIBAVIRIN [Suspect]
     Indication: HEPATIC CIRRHOSIS
  5. INTERFERON ALFA [Suspect]
     Indication: HEPATITIS C
     Dosage: 180 MICROGRAM, QW
     Route: 058
     Dates: start: 20120727
  6. ATACAND PLUS [Concomitant]
     Dosage: 16/12.5, QD, 1 TAB DAILY
  7. ROSUVASTATINE [Concomitant]
     Dosage: 10 MG, QD
  8. VENLAFAXINE HYDROCHLORIDE [Concomitant]
     Dosage: 150 MG, QD
  9. METOCLOPRAMIDE HYDROCHLORIDE [Concomitant]
     Dosage: 10 MG TDS, PRN
  10. ESOMEPRAZOLE MAGNESIUM [Concomitant]
     Dosage: 40 MG, QD

REACTIONS (8)
  - Haemophilus infection [Unknown]
  - Lip blister [Unknown]
  - Fall [Unknown]
  - Limb discomfort [Unknown]
  - Hypotension [Unknown]
  - Hypokalaemia [Unknown]
  - Sinus tachycardia [Unknown]
  - Pneumonia haemophilus [Unknown]
